FAERS Safety Report 13994903 (Version 2)
Quarter: 2017Q4

REPORT INFORMATION
  Report Type: Report from Study
  Country: None (occurrence: CA)
  Receive Date: 20170921
  Receipt Date: 20171030
  Transmission Date: 20180321
  Serious: Yes (Hospitalization, Other)
  Sender: FDA-Public Use
  Company Number: CA-ABBVIE-17K-028-2104071-00

PATIENT
  Age: 59 Year
  Sex: Female
  Weight: 84.5 kg

DRUGS (2)
  1. HUMIRA [Suspect]
     Active Substance: ADALIMUMAB
     Indication: CROHN^S DISEASE
     Route: 058
     Dates: start: 20170313
  2. AZATHIOPRINE. [Concomitant]
     Active Substance: AZATHIOPRINE
     Indication: CROHN^S DISEASE
     Route: 048
     Dates: start: 200209

REACTIONS (8)
  - Blood pressure increased [Recovered/Resolved]
  - Injection site pain [Not Recovered/Not Resolved]
  - Intestinal obstruction [Recovered/Resolved]
  - Dyspepsia [Not Recovered/Not Resolved]
  - Abdominal distension [Recovered/Resolved]
  - Tooth fracture [Not Recovered/Not Resolved]
  - Injection site bruising [Not Recovered/Not Resolved]
  - Abdominal adhesions [Recovered/Resolved]

NARRATIVE: CASE EVENT DATE: 2017
